FAERS Safety Report 4414342-7 (Version None)
Quarter: 2004Q3

REPORT INFORMATION
  Report Type: 
  Country: None (occurrence: None)
  Receive Date: 20040701
  Receipt Date: 20040209
  Transmission Date: 20050211
  Serious: Yes (Hospitalization)
  Sender: FDA-Public Use
  Company Number: VISP-PR-0402S-0041(0)

PATIENT
  Age: 70 Year
  Sex: Female

DRUGS (2)
  1. VISIPAQUE [Suspect]
     Indication: ANEURYSM
     Dosage: , SINGLE DOSE, I.V.
     Route: 042
     Dates: start: 20040113, end: 20040113
  2. STEROIDS (NAME OF DRUG NOT KNOWN) [Concomitant]

REACTIONS (1)
  - HYPERSENSITIVITY [None]
